FAERS Safety Report 7157059 (Version 2)
Quarter: 2012Q4

REPORT INFORMATION
  Report Type: 
  Country: CA (occurrence: CA)
  Receive Date: 20091023
  Receipt Date: 20121020
  Transmission Date: 20130627
  Serious: Yes (Other)
  Sender: FDA-Public Use
  Company Number: PHHO2005CA16782

PATIENT
  Age: 21 Year
  Sex: Male

DRUGS (6)
  1. SANDOSTATIN LAR (PATIENT BASIS) [Suspect]
     Indication: HEPATIC NEOPLASM MALIGNANT NON-RESECTABLE
     Dosage: 20 mg, QMO
     Dates: start: 20040906
  2. APO-CAL [Concomitant]
  3. IRON [Concomitant]
  4. URSO [Concomitant]
  5. VIOXX [Concomitant]
  6. VITAMIN B12 [Concomitant]

REACTIONS (4)
  - Blood pressure diastolic decreased [Unknown]
  - Blood glucose increased [Unknown]
  - Heart rate increased [Unknown]
  - Fall [Unknown]
